FAERS Safety Report 18015996 (Version 2)
Quarter: 2020Q3

REPORT INFORMATION
  Report Type: Spontaneous
  Country: JP (occurrence: JP)
  Receive Date: 20200713
  Receipt Date: 20200817
  Transmission Date: 20201103
  Serious: Yes (Hospitalization, Other)
  Sender: FDA-Public Use
  Company Number: JP-PFIZER INC-2020261766

PATIENT
  Age: 75 Year
  Sex: Male
  Weight: 39.6 kg

DRUGS (9)
  1. BIOFERMIN R [Concomitant]
     Active Substance: DIETARY SUPPLEMENT\PROBIOTICS
     Dosage: UNK
  2. ROZEREM [Concomitant]
     Active Substance: RAMELTEON
     Dosage: UNK
  3. BELSOMRA [Concomitant]
     Active Substance: SUVOREXANT
     Dosage: UNK
  4. LANSOPRAZOLE. [Concomitant]
     Active Substance: LANSOPRAZOLE
     Dosage: UNK
     Dates: start: 20200120
  5. DALACIN [Suspect]
     Active Substance: CLINDAMYCIN
     Indication: INFECTIVE SPONDYLITIS
     Dosage: 450 MG, 4X/DAY
     Route: 048
     Dates: start: 20200426, end: 20200522
  6. AMLODIPINE [Concomitant]
     Active Substance: AMLODIPINE BESYLATE
     Dosage: UNK
  7. FEXOFENADINE [Concomitant]
     Active Substance: FEXOFENADINE HYDROCHLORIDE
     Dosage: UNK
  8. ONBREZ [Concomitant]
     Active Substance: INDACATEROL
     Dosage: UNK
  9. MAGMITT [Concomitant]
     Active Substance: MAGNESIUM OXIDE
     Dosage: UNK

REACTIONS (3)
  - Monocyte count increased [Unknown]
  - Eosinophil count increased [Unknown]
  - Neutropenia [Recovered/Resolved]

NARRATIVE: CASE EVENT DATE: 20200427
